FAERS Safety Report 7722684-2 (Version None)
Quarter: 2011Q3

REPORT INFORMATION
  Report Type: 
  Country: None (occurrence: None)
  Receive Date: 20110831
  Receipt Date: 20110822
  Transmission Date: 20111222
  Serious: Yes (Other)
  Sender: FDA-Public Use
  Company Number: US-ASTRAZENECA-2011SE50527

PATIENT

DRUGS (2)
  1. QUETIAPINE [Suspect]
     Dosage: 4 TABLETS OF 25 MG AT BED TIME INAPPROPRIATELY PLACEBO-ACTIVE DRUG COMBINATION
     Route: 048
  2. QUETIAPINE [Suspect]
     Indication: SLEEP DISORDER
     Route: 048

REACTIONS (1)
  - FALL [None]
